FAERS Safety Report 24562292 (Version 1)
Quarter: 2024Q4

REPORT INFORMATION
  Report Type: Spontaneous
  Country: GB (occurrence: GB)
  Receive Date: 20241029
  Receipt Date: 20241029
  Transmission Date: 20250114
  Serious: Yes (Other)
  Sender: SANOFI AVENTIS
  Company Number: None

PATIENT
  Age: 76 Year
  Sex: Female
  Weight: 129 kg

DRUGS (1)
  1. MULTAQ [Suspect]
     Active Substance: DRONEDARONE
     Indication: Atrial fibrillation
     Dosage: UNK
     Dates: start: 20240703

REACTIONS (1)
  - Cluster headache [Not Recovered/Not Resolved]

NARRATIVE: CASE EVENT DATE: 20240703
